FAERS Safety Report 9417457 (Version 1)
Quarter: 2013Q3

REPORT INFORMATION
  Report Type: Spontaneous
  Country: US (occurrence: None)
  Receive Date: 20130722
  Receipt Date: 20130722
  Transmission Date: 20140515
  Serious: No
  Sender: FDA-Public Use
  Company Number: None

PATIENT
  Age: 61 Year
  Sex: Female
  Weight: 71.22 kg

DRUGS (6)
  1. AMBIEN [Suspect]
     Indication: INSOMNIA
     Route: 048
     Dates: start: 20130205, end: 20130719
  2. AZITHROMYCIN [Concomitant]
  3. RIFAMPIN [Concomitant]
  4. NYSTATIN [Concomitant]
  5. METFORMIN- FOR PCOS-UNITHROID [Concomitant]
  6. NATURE THYROID COMPOUNDED FOR TIME RELEASE [Concomitant]

REACTIONS (2)
  - Drug ineffective [None]
  - Product substitution issue [None]
